FAERS Safety Report 14758104 (Version 2)
Quarter: 2019Q1

REPORT INFORMATION
  Report Type: Spontaneous
  Country: US (occurrence: US)
  Receive Date: 20180413
  Receipt Date: 20190308
  Transmission Date: 20190417
  Serious: Yes (Other)
  Sender: FDA-Public Use
  Company Number: US-ASTRAZENECA-2018SE45287

PATIENT
  Sex: Male

DRUGS (19)
  1. ONGLYZA [Suspect]
     Active Substance: SAXAGLIPTIN HYDROCHLORIDE
     Indication: DIABETES MELLITUS
     Route: 048
     Dates: start: 2012
  2. ONGLYZA [Suspect]
     Active Substance: SAXAGLIPTIN HYDROCHLORIDE
     Indication: DIABETES MELLITUS
     Dosage: GENERIC
     Route: 048
  3. ONGLYZA [Suspect]
     Active Substance: SAXAGLIPTIN HYDROCHLORIDE
     Indication: DIABETES MELLITUS
     Route: 048
     Dates: start: 2012, end: 2018
  4. COREG [Concomitant]
     Active Substance: CARVEDILOL
  5. LIPITOR [Concomitant]
     Active Substance: ATORVASTATIN CALCIUM
  6. ASPIRIN. [Concomitant]
     Active Substance: ASPIRIN
  7. DILAUDID [Concomitant]
     Active Substance: HYDROMORPHONE HYDROCHLORIDE
  8. NORCO [Concomitant]
     Active Substance: ACETAMINOPHEN\HYDROCODONE BITARTRATE
  9. LEVOFLOXACIN. [Concomitant]
     Active Substance: LEVOFLOXACIN
  10. LANTUS [Concomitant]
     Active Substance: INSULIN GLARGINE
  11. VIIBRYD [Concomitant]
     Active Substance: VILAZODONE HYDROCHLORIDE
  12. IMDUR [Concomitant]
     Active Substance: ISOSORBIDE MONONITRATE
  13. AMLODIPINE [Concomitant]
     Active Substance: AMLODIPINE BESYLATE
  14. GABAPENTIN. [Concomitant]
     Active Substance: GABAPENTIN
  15. PROTONIX [Concomitant]
     Active Substance: PANTOPRAZOLE SODIUM
  16. SERTRALINE [Concomitant]
     Active Substance: SERTRALINE HYDROCHLORIDE
  17. LEVAQUIN [Concomitant]
     Active Substance: LEVOFLOXACIN
  18. ZETIA [Concomitant]
     Active Substance: EZETIMIBE
  19. KOMBIGLYZE XR [Suspect]
     Active Substance: METFORMIN HYDROCHLORIDE\SAXAGLIPTIN HYDROCHLORIDE
     Route: 048
     Dates: start: 2012

REACTIONS (3)
  - Cardiac failure congestive [Unknown]
  - Cardiovascular disorder [Unknown]
  - Cardiac failure [Unknown]
